FAERS Safety Report 9589120 (Version 1)
Quarter: 2013Q4

REPORT INFORMATION
  Report Type: Spontaneous
  Country: US (occurrence: US)
  Receive Date: 20131003
  Receipt Date: 20131003
  Transmission Date: 20140711
  Serious: No
  Sender: FDA-Public Use
  Company Number: US-AMGEN-USASP2012068566

PATIENT
  Age: 35 Year
  Sex: Female

DRUGS (2)
  1. METHOTREXATE [Concomitant]
     Dosage: UNK (PILL FORM FROM UNK-MAR-2012-UNK-MAY-2012, 0.4ML INJECTION ONCE WEEKLYFROM UNK-MAY-2012-ONGOING
     Dates: start: 201203
  2. ENBREL [Suspect]
     Indication: RHEUMATOID ARTHRITIS
     Dosage: 50 MG, QWK
     Dates: start: 20121020

REACTIONS (1)
  - Arthralgia [Not Recovered/Not Resolved]
